FAERS Safety Report 5222677-3 (Version None)
Quarter: 2007Q1

REPORT INFORMATION
  Report Type: 
  Country: None (occurrence: None)
  Receive Date: 20070124
  Receipt Date: 20070108
  Transmission Date: 20070707
  Serious: Yes (Death)
  Sender: FDA-Public Use
  Company Number: 13652

PATIENT
  Age: 74 Year
  Sex: Female

DRUGS (4)
  1. METHOTREXATE [Suspect]
     Indication: RHEUMATOID ARTHRITIS
  2. TRIMETHOPRIM [Suspect]
     Indication: URINARY TRACT INFECTION
     Dosage: 150 MG FREQ UNK PO
     Route: 048
     Dates: start: 20050830, end: 20050902
  3. FOLATE [Concomitant]
  4. CIPROFLOXACIN HCL [Concomitant]

REACTIONS (21)
  - BONE MARROW FAILURE [None]
  - CLOSTRIDIAL INFECTION [None]
  - CONTRAINDICATION TO MEDICAL TREATMENT [None]
  - DIARRHOEA [None]
  - DRUG INTERACTION [None]
  - DRUG LEVEL DECREASED [None]
  - FALL [None]
  - HAEMATURIA [None]
  - HIP FRACTURE [None]
  - IATROGENIC INJURY [None]
  - KLEBSIELLA SEPSIS [None]
  - MALAISE [None]
  - NEUTROPENIC SEPSIS [None]
  - OVARIAN CYST [None]
  - PELVIC MASS [None]
  - POST PROCEDURAL URINE LEAK [None]
  - PROCEDURAL COMPLICATION [None]
  - SEPTIC SHOCK [None]
  - STAPHYLOCOCCAL INFECTION [None]
  - URETERIC INJURY [None]
  - URINARY TRACT INFECTION [None]
